FAERS Safety Report 8843561 (Version 1)
Quarter: 2012Q4

REPORT INFORMATION
  Report Type: 
  Country: TW (occurrence: TW)
  Receive Date: 20121016
  Receipt Date: 20121016
  Transmission Date: 20130627
  Serious: Yes (Hospitalization, Other)
  Sender: FDA-Public Use
  Company Number: PHHY2012TW088654

PATIENT
  Age: 65 Year
  Sex: Female

DRUGS (1)
  1. AMIODARONE [Suspect]
     Indication: VENTRICULAR ARRHYTHMIA

REACTIONS (9)
  - Nephropathy [Unknown]
  - Hypothyroidism [Recovering/Resolving]
  - Ascites [Recovering/Resolving]
  - Pleural effusion [Unknown]
  - Hepatic atrophy [Unknown]
  - Cutaneous contour deformity [Unknown]
  - Renal cyst [Unknown]
  - Periportal oedema [Unknown]
  - Hepatic congestion [Unknown]
